FAERS Safety Report 24283140 (Version 1)
Quarter: 2024Q3

REPORT INFORMATION
  Report Type: Spontaneous
  Country: CN (occurrence: CN)
  Receive Date: 20240904
  Receipt Date: 20240904
  Transmission Date: 20241017
  Serious: Yes (Hospitalization, Other)
  Sender: BAYER
  Company Number: CN-BAYER-2024A126626

PATIENT
  Age: 44 Year
  Sex: Female
  Weight: 48 kg

DRUGS (1)
  1. STIVARGA [Suspect]
     Active Substance: REGORAFENIB MONOHYDRATE
     Indication: Hepatocellular carcinoma
     Dosage: 160 MG, QD
     Route: 048
     Dates: start: 20240816, end: 20240830

REACTIONS (5)
  - Temperature intolerance [None]
  - Pyrexia [Recovered/Resolved]
  - Skin exfoliation [None]
  - Rash erythematous [Recovering/Resolving]
  - Pain in extremity [None]

NARRATIVE: CASE EVENT DATE: 20240801
